FAERS Safety Report 6856550-1 (Version None)
Quarter: 2010Q3

REPORT INFORMATION
  Report Type: 
  Country: None (occurrence: None)
  Receive Date: 20100719
  Receipt Date: 20100709
  Transmission Date: 20110219
  Serious: Yes (Death)
  Sender: FDA-Public Use
  Company Number: CO-ROCHE-714303

PATIENT
  Sex: Male

DRUGS (4)
  1. AVASTIN [Suspect]
     Dosage: FORM: INFUSION
     Route: 042
     Dates: start: 20090926, end: 20091117
  2. TRAMADOL [Concomitant]
     Indication: PAIN
     Dosage: DOSE REPORTED AS DROPS, FREQUENCY EVERY DAY
     Route: 048
  3. MORPHINE [Concomitant]
     Indication: PAIN
     Dosage: DRUG NAME REPORTED AS MORPHINA, DOSE REPORTED AS DROPS, FREQUENCY EVERY DAY
     Route: 048
  4. ONDANSETRON [Concomitant]
     Route: 048

REACTIONS (1)
  - MALIGNANT NEOPLASM PROGRESSION [None]
